FAERS Safety Report 6672889-7 (Version None)
Quarter: 2010Q2

REPORT INFORMATION
  Report Type: 
  Country: None (occurrence: None)
  Receive Date: 20100408
  Receipt Date: 20100329
  Transmission Date: 20101027
  Serious: Yes (Other)
  Sender: FDA-Public Use
  Company Number: PHHY2010US19766

PATIENT
  Age: 60 Year
  Sex: Female

DRUGS (1)
  1. TRILEPTAL [Suspect]
     Indication: POST HERPETIC NEURALGIA
     Route: 048

REACTIONS (2)
  - BLOOD SODIUM DECREASED [None]
  - PERIPHERAL NERVE OPERATION [None]
